FAERS Safety Report 19800010 (Version 6)
Quarter: 2025Q3

REPORT INFORMATION
  Report Type: Spontaneous
  Country: EU (occurrence: EU)
  Receive Date: 20210907
  Receipt Date: 20250811
  Transmission Date: 20251020
  Serious: Yes (Death, Hospitalization, Other)
  Sender: MYLAN
  Company Number: EU-002147023-NVSC2021PL065179

PATIENT
  Age: 30 Year
  Sex: Male

DRUGS (84)
  1. CANDESARTAN [Suspect]
     Active Substance: CANDESARTAN
     Indication: Product used for unknown indication
  2. CANDESARTAN [Suspect]
     Active Substance: CANDESARTAN
  3. CANDESARTAN [Suspect]
     Active Substance: CANDESARTAN
     Route: 065
  4. CANDESARTAN [Suspect]
     Active Substance: CANDESARTAN
     Route: 065
  5. CANDESARTAN [Suspect]
     Active Substance: CANDESARTAN
  6. CANDESARTAN [Suspect]
     Active Substance: CANDESARTAN
  7. CANDESARTAN [Suspect]
     Active Substance: CANDESARTAN
     Route: 065
  8. CANDESARTAN [Suspect]
     Active Substance: CANDESARTAN
     Route: 065
  9. TORSEMIDE [Suspect]
     Active Substance: TORSEMIDE
     Indication: Product used for unknown indication
  10. TORSEMIDE [Suspect]
     Active Substance: TORSEMIDE
  11. TORSEMIDE [Suspect]
     Active Substance: TORSEMIDE
     Route: 065
  12. TORSEMIDE [Suspect]
     Active Substance: TORSEMIDE
     Route: 065
  13. TORSEMIDE [Suspect]
     Active Substance: TORSEMIDE
  14. TORSEMIDE [Suspect]
     Active Substance: TORSEMIDE
  15. TORSEMIDE [Suspect]
     Active Substance: TORSEMIDE
     Route: 065
  16. TORSEMIDE [Suspect]
     Active Substance: TORSEMIDE
     Route: 065
  17. METOPROLOL [Suspect]
     Active Substance: METOPROLOL
     Indication: Product used for unknown indication
  18. METOPROLOL [Suspect]
     Active Substance: METOPROLOL
     Route: 065
  19. METOPROLOL [Suspect]
     Active Substance: METOPROLOL
     Route: 065
  20. METOPROLOL [Suspect]
     Active Substance: METOPROLOL
  21. AZITHROMYCIN [Suspect]
     Active Substance: AZITHROMYCIN
     Indication: Graft versus host disease
  22. AZITHROMYCIN [Suspect]
     Active Substance: AZITHROMYCIN
     Route: 065
  23. AZITHROMYCIN [Suspect]
     Active Substance: AZITHROMYCIN
     Route: 065
  24. AZITHROMYCIN [Suspect]
     Active Substance: AZITHROMYCIN
  25. MONTELUKAST [Suspect]
     Active Substance: MONTELUKAST
     Indication: Graft versus host disease
  26. MONTELUKAST [Suspect]
     Active Substance: MONTELUKAST
     Indication: Lung disorder
     Route: 065
  27. MONTELUKAST [Suspect]
     Active Substance: MONTELUKAST
     Route: 065
  28. MONTELUKAST [Suspect]
     Active Substance: MONTELUKAST
  29. RUXOLITINIB [Suspect]
     Active Substance: RUXOLITINIB
     Indication: Chronic graft versus host disease
  30. RUXOLITINIB [Suspect]
     Active Substance: RUXOLITINIB
     Route: 048
  31. RUXOLITINIB [Suspect]
     Active Substance: RUXOLITINIB
     Route: 048
  32. RUXOLITINIB [Suspect]
     Active Substance: RUXOLITINIB
  33. SACUBITRIL\VALSARTAN [Suspect]
     Active Substance: SACUBITRIL\VALSARTAN
     Indication: Product used for unknown indication
  34. SACUBITRIL\VALSARTAN [Suspect]
     Active Substance: SACUBITRIL\VALSARTAN
     Route: 065
  35. SACUBITRIL\VALSARTAN [Suspect]
     Active Substance: SACUBITRIL\VALSARTAN
     Route: 065
  36. SACUBITRIL\VALSARTAN [Suspect]
     Active Substance: SACUBITRIL\VALSARTAN
  37. MYCOPHENOLATE MOFETIL [Suspect]
     Active Substance: MYCOPHENOLATE MOFETIL
     Indication: Graft versus host disease
  38. MYCOPHENOLATE MOFETIL [Suspect]
     Active Substance: MYCOPHENOLATE MOFETIL
     Indication: Chronic graft versus host disease
     Route: 065
  39. MYCOPHENOLATE MOFETIL [Suspect]
     Active Substance: MYCOPHENOLATE MOFETIL
     Route: 065
  40. MYCOPHENOLATE MOFETIL [Suspect]
     Active Substance: MYCOPHENOLATE MOFETIL
  41. METHOTREXATE [Suspect]
     Active Substance: METHOTREXATE
     Indication: Prophylaxis against graft versus host disease
     Dosage: UNK, QW
  42. METHOTREXATE [Suspect]
     Active Substance: METHOTREXATE
     Indication: Graft versus host disease
     Dosage: UNK, QW
     Route: 065
  43. METHOTREXATE [Suspect]
     Active Substance: METHOTREXATE
     Indication: Chronic graft versus host disease
     Dosage: UNK, QW
     Route: 065
  44. METHOTREXATE [Suspect]
     Active Substance: METHOTREXATE
     Dosage: UNK, QW
  45. VITAMIN D NOS [Suspect]
     Active Substance: CHOLECALCIFEROL\ERGOCALCIFEROL
     Indication: Product used for unknown indication
  46. VITAMIN D NOS [Suspect]
     Active Substance: CHOLECALCIFEROL\ERGOCALCIFEROL
     Route: 065
  47. VITAMIN D NOS [Suspect]
     Active Substance: CHOLECALCIFEROL\ERGOCALCIFEROL
     Route: 065
  48. VITAMIN D NOS [Suspect]
     Active Substance: CHOLECALCIFEROL\ERGOCALCIFEROL
  49. FLUTICASONE [Suspect]
     Active Substance: FLUTICASONE
     Indication: Graft versus host disease
  50. FLUTICASONE [Suspect]
     Active Substance: FLUTICASONE
     Indication: Chronic graft versus host disease
     Route: 065
  51. FLUTICASONE [Suspect]
     Active Substance: FLUTICASONE
     Route: 065
  52. FLUTICASONE [Suspect]
     Active Substance: FLUTICASONE
  53. CYCLOSPORINE [Suspect]
     Active Substance: CYCLOSPORINE
     Indication: Prophylaxis against graft versus host disease
  54. CYCLOSPORINE [Suspect]
     Active Substance: CYCLOSPORINE
     Indication: Chronic graft versus host disease
     Route: 065
  55. CYCLOSPORINE [Suspect]
     Active Substance: CYCLOSPORINE
     Route: 065
  56. CYCLOSPORINE [Suspect]
     Active Substance: CYCLOSPORINE
  57. TACROLIMUS [Suspect]
     Active Substance: TACROLIMUS
     Indication: Graft versus host disease
  58. TACROLIMUS [Suspect]
     Active Substance: TACROLIMUS
     Indication: Chronic graft versus host disease
     Route: 065
  59. TACROLIMUS [Suspect]
     Active Substance: TACROLIMUS
     Route: 065
  60. TACROLIMUS [Suspect]
     Active Substance: TACROLIMUS
  61. DEXAMETHASONE [Suspect]
     Active Substance: DEXAMETHASONE
     Indication: Prophylaxis against graft versus host disease
  62. DEXAMETHASONE [Suspect]
     Active Substance: DEXAMETHASONE
     Indication: Graft versus host disease
     Route: 065
  63. DEXAMETHASONE [Suspect]
     Active Substance: DEXAMETHASONE
     Indication: Chronic graft versus host disease
     Route: 065
  64. DEXAMETHASONE [Suspect]
     Active Substance: DEXAMETHASONE
  65. MOMETASONE FUROATE [Suspect]
     Active Substance: MOMETASONE FUROATE
     Indication: Chronic graft versus host disease
  66. MOMETASONE FUROATE [Suspect]
     Active Substance: MOMETASONE FUROATE
     Route: 065
  67. MOMETASONE FUROATE [Suspect]
     Active Substance: MOMETASONE FUROATE
     Route: 065
  68. MOMETASONE FUROATE [Suspect]
     Active Substance: MOMETASONE FUROATE
  69. METHYLPREDNISOLONE [Suspect]
     Active Substance: METHYLPREDNISOLONE
     Indication: Graft versus host disease
  70. METHYLPREDNISOLONE [Suspect]
     Active Substance: METHYLPREDNISOLONE
     Indication: Chronic graft versus host disease
     Route: 048
  71. METHYLPREDNISOLONE [Suspect]
     Active Substance: METHYLPREDNISOLONE
     Route: 048
  72. METHYLPREDNISOLONE [Suspect]
     Active Substance: METHYLPREDNISOLONE
  73. FLUDARABINE [Suspect]
     Active Substance: FLUDARABINE PHOSPHATE
     Indication: Chronic graft versus host disease
  74. FLUDARABINE [Suspect]
     Active Substance: FLUDARABINE PHOSPHATE
     Route: 065
  75. FLUDARABINE [Suspect]
     Active Substance: FLUDARABINE PHOSPHATE
     Route: 065
  76. FLUDARABINE [Suspect]
     Active Substance: FLUDARABINE PHOSPHATE
  77. MELPHALAN [Suspect]
     Active Substance: MELPHALAN
     Indication: Chronic graft versus host disease
  78. MELPHALAN [Suspect]
     Active Substance: MELPHALAN
     Route: 065
  79. MELPHALAN [Suspect]
     Active Substance: MELPHALAN
     Route: 065
  80. MELPHALAN [Suspect]
     Active Substance: MELPHALAN
  81. SIROLIMUS [Suspect]
     Active Substance: SIROLIMUS
     Indication: Chronic graft versus host disease
  82. SIROLIMUS [Suspect]
     Active Substance: SIROLIMUS
     Route: 065
  83. SIROLIMUS [Suspect]
     Active Substance: SIROLIMUS
     Route: 065
  84. SIROLIMUS [Suspect]
     Active Substance: SIROLIMUS

REACTIONS (21)
  - Erythema [Fatal]
  - General physical health deterioration [Fatal]
  - Lichenoid keratosis [Fatal]
  - Pleural effusion [Fatal]
  - Weight decreased [Fatal]
  - Mastication disorder [Fatal]
  - Dyspnoea [Fatal]
  - Chronic graft versus host disease [Fatal]
  - Disease progression [Fatal]
  - Drug resistance [Fatal]
  - Disease recurrence [Fatal]
  - Pneumonia [Fatal]
  - Heart rate increased [Unknown]
  - Pulmonary congestion [Unknown]
  - Ejection fraction abnormal [Unknown]
  - Cough [Unknown]
  - Exercise tolerance decreased [Unknown]
  - Graft versus host disease [Not Recovered/Not Resolved]
  - Therapeutic product effect incomplete [Unknown]
  - Product use in unapproved indication [Unknown]
  - Drug ineffective for unapproved indication [Unknown]
